FAERS Safety Report 20976788 (Version 1)
Quarter: 2022Q2

REPORT INFORMATION
  Report Type: Spontaneous
  Country: US (occurrence: US)
  Receive Date: 20220617
  Receipt Date: 20220617
  Transmission Date: 20220721
  Serious: No
  Sender: FDA-Public Use
  Company Number: US-PFIZER INC-202200845348

PATIENT
  Age: 24 Year
  Sex: Male

DRUGS (2)
  1. MEKTOVI [Suspect]
     Active Substance: BINIMETINIB
     Indication: Malignant melanoma
     Dosage: 45 MG, 2X/DAY (THE PATIENT WAS TAKING 15MG TABLETS THREE TABLETS TWICE PER DAY BY MOUTH
     Route: 048
     Dates: start: 20220427
  2. BRAFTOVI [Suspect]
     Active Substance: ENCORAFENIB
     Indication: Malignant melanoma
     Dosage: 450 MG, DAILY (TOOK 75MG SIX CAPSULES BY MOUTH DAILY FOR A TOTAL DAILY DOSE OF 450MG
     Route: 048
     Dates: start: 20220427

REACTIONS (2)
  - Hepatic enzyme increased [Unknown]
  - Nausea [Unknown]
